FAERS Safety Report 7099951-1 (Version None)
Quarter: 2010Q4

REPORT INFORMATION
  Report Type: 
  Country: None (occurrence: None)
  Receive Date: 20101104
  Receipt Date: 20101027
  Transmission Date: 20110411
  Serious: Yes (Hospitalization)
  Sender: FDA-Public Use
  Company Number: USA/USA/10/0016431

PATIENT
  Age: 48 Year
  Sex: Male
  Weight: 91.173 kg

DRUGS (6)
  1. RANITIDINE [Suspect]
     Indication: GASTROOESOPHAGEAL REFLUX DISEASE
     Dosage: 150 MG, 2 IN 1 D, PER ORAL
     Route: 048
     Dates: start: 20090901, end: 20090920
  2. NORCO [Concomitant]
  3. LEVOTHYROXINE SODIUM [Concomitant]
  4. SIMVASTATIN [Concomitant]
  5. CYCLOBENZAPRINE [Concomitant]
  6. AMLODIPINE [Concomitant]

REACTIONS (2)
  - FAECES DISCOLOURED [None]
  - VOMITING [None]
